FAERS Safety Report 21213864 (Version 2)
Quarter: 2022Q3

REPORT INFORMATION
  Report Type: Report from Study
  Country: US (occurrence: US)
  Receive Date: 20220816
  Receipt Date: 20220908
  Transmission Date: 20221026
  Serious: No
  Sender: FDA-Public Use
  Company Number: US-ACADIA PHARMACEUTICALS INC.-ACA-2022-PIM-002580

PATIENT
  Sex: Male

DRUGS (18)
  1. NUPLAZID [Suspect]
     Active Substance: PIMAVANSERIN TARTRATE
     Indication: Delusion
     Dosage: 34 MILLIGRAM, QD
     Route: 048
  2. NUPLAZID [Suspect]
     Active Substance: PIMAVANSERIN TARTRATE
     Indication: Hallucination
  3. NUPLAZID [Suspect]
     Active Substance: PIMAVANSERIN TARTRATE
     Indication: Parkinson^s disease psychosis
  4. DONEPEZIL [Concomitant]
     Active Substance: DONEPEZIL
  5. FENOFIBRATE [Concomitant]
     Active Substance: FENOFIBRATE
  6. TRIAMCINOLONE [Concomitant]
     Active Substance: TRIAMCINOLONE
  7. DICLOFENAC [Concomitant]
     Active Substance: DICLOFENAC
  8. RYTARY [Concomitant]
     Active Substance: CARBIDOPA\LEVODOPA
  9. AMLODIPINE [Concomitant]
     Active Substance: AMLODIPINE BESYLATE
  10. MEMANTINE [Concomitant]
     Active Substance: MEMANTINE
  11. CARBIDOPA\LEVODOPA [Concomitant]
     Active Substance: CARBIDOPA\LEVODOPA
  12. OMEGA-3-ACID ETHYL ESTERS [Concomitant]
     Active Substance: OMEGA-3-ACID ETHYL ESTERS
  13. KETOCONAZOLE [Concomitant]
     Active Substance: KETOCONAZOLE
  14. MIRABEGRON [Concomitant]
     Active Substance: MIRABEGRON
  15. DESMOPRESSIN [Concomitant]
     Active Substance: DESMOPRESSIN
  16. LACTASE [Concomitant]
     Active Substance: LACTASE
     Route: 048
  17. DOCUSATE SODIUM [Concomitant]
     Active Substance: DOCUSATE SODIUM
  18. POLYETHYLENE GLYCOL [MACROGOL 3350] [Concomitant]

REACTIONS (5)
  - Nonspecific reaction [Unknown]
  - Memory impairment [Unknown]
  - Loss of personal independence in daily activities [Unknown]
  - Dysstasia [Unknown]
  - Aggression [Unknown]
